FAERS Safety Report 19868853 (Version 4)
Quarter: 2022Q1

REPORT INFORMATION
  Report Type: Report from Study
  Country: CA (occurrence: CA)
  Receive Date: 20210922
  Receipt Date: 20220104
  Transmission Date: 20220424
  Serious: Yes (Hospitalization, Other)
  Sender: FDA-Public Use
  Company Number: CA-JNJFOC-20210938397

PATIENT
  Age: 71 Year
  Sex: Female
  Weight: 92 kg

DRUGS (1)
  1. REMICADE [Suspect]
     Active Substance: INFLIXIMAB
     Indication: Crohn^s disease
     Route: 042
     Dates: start: 20060301

REACTIONS (8)
  - Gastroenteritis salmonella [Recovered/Resolved]
  - Urinary tract infection [Recovered/Resolved]
  - Visual impairment [Recovered/Resolved]
  - Aggression [Unknown]
  - Anxiety [Recovered/Resolved]
  - Disorientation [Recovered/Resolved]
  - Tearfulness [Recovered/Resolved]
  - Headache [Recovered/Resolved]

NARRATIVE: CASE EVENT DATE: 20210730
